FAERS Safety Report 10335681 (Version 1)
Quarter: 2014Q3

REPORT INFORMATION
  Report Type: Spontaneous
  Country: SE (occurrence: SE)
  Receive Date: 20140723
  Receipt Date: 20140723
  Transmission Date: 20150326
  Serious: Yes (Other)
  Sender: FDA-Public Use
  Company Number: SE-TEVA-494418ISR

PATIENT
  Age: 67 Year
  Sex: Female

DRUGS (2)
  1. KALCIPOS-D FORTE 500 MG/800 IE FILMDRAGERAD TABLETT [Concomitant]
     Dates: start: 20140609
  2. ALENDRONAT [Suspect]
     Active Substance: ALENDRONATE SODIUM
     Indication: OSTEOPOROSIS
     Route: 048
     Dates: start: 20140619, end: 20140619

REACTIONS (1)
  - Anaphylactic reaction [Not Recovered/Not Resolved]

NARRATIVE: CASE EVENT DATE: 20140619
